FAERS Safety Report 19766829 (Version 1)
Quarter: 2021Q3

REPORT INFORMATION
  Report Type: Spontaneous
  Country: US (occurrence: US)
  Receive Date: 20210830
  Receipt Date: 20210830
  Transmission Date: 20211014
  Serious: Yes (Other)
  Sender: FDA-Public Use
  Company Number: None

PATIENT
  Age: 68 Year
  Sex: Male
  Weight: 76.5 kg

DRUGS (2)
  1. PROSCAR [Suspect]
     Active Substance: FINASTERIDE
  2. HYTRIN [Concomitant]
     Active Substance: TERAZOSIN HYDROCHLORIDE

REACTIONS (9)
  - Hot flush [None]
  - Bone marrow disorder [None]
  - Infection [None]
  - Hyperhidrosis [None]
  - Platelet count decreased [None]
  - Burning sensation [None]
  - Hypersplenism [None]
  - Chills [None]
  - Bone pain [None]

NARRATIVE: CASE EVENT DATE: 20210702
